FAERS Safety Report 5750886-3 (Version None)
Quarter: 2008Q2

REPORT INFORMATION
  Report Type: 
  Country: None (occurrence: None)
  Receive Date: 20080528
  Receipt Date: 20080522
  Transmission Date: 20081010
  Serious: Yes (Other)
  Sender: FDA-Public Use
  Company Number: US-ASTRAZENECA-2008UW09047

PATIENT
  Age: 82 Year
  Sex: Female
  Weight: 70.9 kg

DRUGS (7)
  1. CRESTOR [Suspect]
     Indication: BLOOD CHOLESTEROL INCREASED
     Route: 048
     Dates: start: 20080117
  2. CARDURA [Suspect]
     Indication: HYPERTENSION
     Route: 048
     Dates: start: 20071226, end: 20080311
  3. CARDURA [Suspect]
     Route: 048
     Dates: start: 20080311, end: 20080501
  4. METOPROLOL TARTRATE [Concomitant]
  5. NORVASC [Concomitant]
  6. ASPIRIN [Concomitant]
  7. SYNTHROID [Concomitant]

REACTIONS (10)
  - BALANCE DISORDER [None]
  - BODY HEIGHT DECREASED [None]
  - DIZZINESS [None]
  - DRY SKIN [None]
  - GENERAL PHYSICAL HEALTH DETERIORATION [None]
  - MENTAL IMPAIRMENT [None]
  - PRURITUS [None]
  - SKIN LESION [None]
  - SOMNOLENCE [None]
  - VISION BLURRED [None]
